FAERS Safety Report 14951036 (Version 1)
Quarter: 2018Q2

REPORT INFORMATION
  Report Type: Spontaneous
  Country: TW (occurrence: TW)
  Receive Date: 20180530
  Receipt Date: 20180530
  Transmission Date: 20180711
  Serious: Yes (Other)
  Sender: FDA-Public Use
  Company Number: TW-ACCORD-067816

PATIENT
  Age: 52 Year
  Sex: Male
  Weight: 50 kg

DRUGS (3)
  1. IFOSFAMIDE. [Suspect]
     Active Substance: IFOSFAMIDE
     Indication: METASTATIC SQUAMOUS CELL CARCINOMA
  2. NIVOLUMAB [Suspect]
     Active Substance: NIVOLUMAB
     Indication: METASTATIC SQUAMOUS CELL CARCINOMA
     Dosage: 2 MG/KG, BODY WEIGH 50 KG, TOTAL 100 MG ON DAY 1
  3. ETOPOSIDE. [Suspect]
     Active Substance: ETOPOSIDE
     Indication: METASTATIC SQUAMOUS CELL CARCINOMA
     Dosage: 40 MG/M2 ON DAY 1 AND DAY 2 EVERY THREE WEEKS.

REACTIONS (1)
  - Acute kidney injury [Unknown]
